FAERS Safety Report 7751915-8 (Version None)
Quarter: 2011Q3

REPORT INFORMATION
  Report Type: 
  Country: None (occurrence: None)
  Receive Date: 20110914
  Receipt Date: 20110914
  Transmission Date: 20111222
  Serious: No
  Sender: FDA-Public Use
  Company Number: None

PATIENT
  Age: 62 Year
  Sex: Female

DRUGS (1)
  1. REMODULIN [Suspect]
     Indication: PULMONARY ARTERIAL HYPERTENSION
     Dosage: IV/DAILY INFUSION/ DOSE 84 NG/KG/MIN
     Route: 042
     Dates: start: 20100707

REACTIONS (2)
  - DEVICE LEAKAGE [None]
  - DEVICE CONNECTION ISSUE [None]
